FAERS Safety Report 9648394 (Version 2)
Quarter: 2013Q4

REPORT INFORMATION
  Report Type: Spontaneous
  Country: AU (occurrence: AU)
  Receive Date: 20131028
  Receipt Date: 20131112
  Transmission Date: 20140711
  Serious: Yes (Death, Other)
  Sender: FDA-Public Use
  Company Number: AU-CELGENEUS-008-20785-13103018

PATIENT
  Sex: Female

DRUGS (2)
  1. THALOMID [Suspect]
     Indication: HAEMORRHAGIC ARTERIOVENOUS MALFORMATION
     Route: 048
     Dates: start: 201202, end: 201304
  2. THALOMID [Suspect]
     Indication: OFF LABEL USE

REACTIONS (4)
  - Pulmonary sepsis [Fatal]
  - Cardiac failure congestive [Unknown]
  - Gastrointestinal haemorrhage [Not Recovered/Not Resolved]
  - Nausea [Unknown]
